FAERS Safety Report 11773756 (Version 1)
Quarter: 2015Q4

REPORT INFORMATION
  Report Type: Spontaneous
  Country: US (occurrence: US)
  Receive Date: 20151124
  Receipt Date: 20151124
  Transmission Date: 20160304
  Serious: No
  Sender: FDA-Public Use
  Company Number: US-BAYER-2015-474657

PATIENT
  Age: 20 Year
  Sex: Female
  Weight: 72.56 kg

DRUGS (1)
  1. MIRALAX [Suspect]
     Active Substance: POLYETHYLENE GLYCOL 3350
     Indication: CONSTIPATION
     Dosage: 1 DF, PRN
     Route: 048
     Dates: start: 201511, end: 20151117

REACTIONS (4)
  - Dizziness [Unknown]
  - Product quality issue [None]
  - Product taste abnormal [None]
  - Nausea [Unknown]

NARRATIVE: CASE EVENT DATE: 201511
